FAERS Safety Report 6127237-8 (Version None)
Quarter: 2009Q1

REPORT INFORMATION
  Report Type: 
  Country: None (occurrence: None)
  Receive Date: 20090318
  Receipt Date: 20090310
  Transmission Date: 20090719
  Serious: Yes (Death)
  Sender: FDA-Public Use
  Company Number: 09P-087-0561375-00

PATIENT
  Age: 10 Month
  Sex: Male

DRUGS (1)
  1. SYNAGIS [Suspect]
     Indication: INFECTION
     Route: 030
     Dates: start: 20080926, end: 20080926

REACTIONS (1)
  - RESPIRATORY ARREST [None]
